FAERS Safety Report 10101518 (Version 7)
Quarter: 2014Q2

REPORT INFORMATION
  Report Type: Spontaneous
  Country: GB (occurrence: None)
  Receive Date: 20140422
  Receipt Date: 20140606
  Transmission Date: 20141212
  Serious: Yes (Other)
  Sender: FDA-Public Use
  Company Number: AUR-APL-2014-04656

PATIENT
  Age: 85 Year
  Sex: Female

DRUGS (6)
  1. BISOPROLOL [Suspect]
     Indication: PRODUCT USED FOR UNKNOWN INDICATION
  2. PARACETAMOL [Suspect]
     Indication: PRODUCT USED FOR UNKNOWN INDICATION
     Dosage: 2X500MG QID (2 DOSAGE FORMS,4 IN 1 D)
  3. ATORVASTATIN [Suspect]
     Indication: PRODUCT USED FOR UNKNOWN INDICATION
  4. CLOMETHIAZOLE [Suspect]
     Indication: SLEEP DISORDER
     Dosage: 384 MG (192 MG, 2 IN 1 D)
     Route: 048
  5. DIGOXIN [Suspect]
     Indication: PRODUCT USED FOR UNKNOWN INDICATION
  6. PROTHIADEN [Suspect]
     Indication: PRODUCT USED FOR UNKNOWN INDICATION

REACTIONS (7)
  - Agitation [None]
  - Decreased appetite [None]
  - Liver disorder [None]
  - Renal failure [None]
  - Insomnia [None]
  - General physical health deterioration [None]
  - Dementia [None]
